FAERS Safety Report 15665799 (Version 1)
Quarter: 2018Q4

REPORT INFORMATION
  Report Type: Spontaneous
  Country: US (occurrence: US)
  Receive Date: 20181128
  Receipt Date: 20181128
  Transmission Date: 20190205
  Serious: No
  Sender: FDA-Public Use
  Company Number: US-BIOGEN-2018BI00662893

PATIENT
  Sex: Female
  Weight: 56.75 kg

DRUGS (6)
  1. OXYBUTYNIN CHLORIDE. [Concomitant]
     Active Substance: OXYBUTYNIN CHLORIDE
     Route: 065
  2. SENNA LAXATIVE [Concomitant]
     Active Substance: SENNOSIDES
     Route: 065
  3. OXYCODONE HYDROCHLORIDE. [Concomitant]
     Active Substance: OXYCODONE HYDROCHLORIDE
     Route: 065
  4. TECFIDERA [Suspect]
     Active Substance: DIMETHYL FUMARATE
     Indication: MULTIPLE SCLEROSIS
     Route: 048
  5. VALIUM [Concomitant]
     Active Substance: DIAZEPAM
     Route: 065
  6. NAPROXEN. [Concomitant]
     Active Substance: NAPROXEN
     Route: 065

REACTIONS (8)
  - Strabismus [Unknown]
  - Decreased interest [Unknown]
  - Headache [Unknown]
  - Depressed mood [Unknown]
  - Toothache [Unknown]
  - Rash [Unknown]
  - Speech disorder [Unknown]
  - Haematoma [Unknown]
